FAERS Safety Report 8614526-8 (Version None)
Quarter: 2012Q3

REPORT INFORMATION
  Report Type: 
  Country: None (occurrence: None)
  Receive Date: 20120823
  Receipt Date: 20120820
  Transmission Date: 20120928
  Serious: Yes (Hospitalization, Other)
  Sender: FDA-Public Use
  Company Number: PHHY2012FR051363

PATIENT
  Sex: Male

DRUGS (13)
  1. SOLU-MEDROL [Concomitant]
     Dosage: 80 MG, ONCE A DAY
     Route: 042
  2. FLUOROURACIL [Suspect]
     Indication: COLON CANCER
     Dosage: 736 +2208 MG
     Dates: start: 20120502
  3. BISOPROLOL FUMARATE AND HYDROCHLOROTHIAZIDE [Concomitant]
  4. FLUOROURACIL [Suspect]
     Dosage: 736 MG, UNK
     Dates: start: 20120503
  5. RAMIPRIL [Concomitant]
     Dosage: 5 MG, ONCE A DAY
  6. MAGNESIUM SULFATE [Concomitant]
     Dosage: 1.5 G, BID
  7. ONDANSETRON [Suspect]
     Indication: PROPHYLAXIS OF NAUSEA AND VOMITING
     Dosage: 8 MG, UNK
     Route: 042
     Dates: start: 20120502
  8. OXALIPLATIN [Suspect]
     Indication: COLON CANCER
     Dosage: 156 MG, UNK
     Route: 042
     Dates: start: 20120502
  9. LEUCOVORIN CALCIUM [Concomitant]
  10. TEGRETOL [Suspect]
     Indication: EPILEPSY
     Dosage: 1 DF, DAILY
     Route: 048
     Dates: start: 19830101
  11. CALCIUM GLUCONATE [Concomitant]
     Dosage: 1 G, BID
  12. FLUVASTATIN SODIUM [Concomitant]
     Dosage: 80 MG, UNK
  13. FRAXODI [Concomitant]

REACTIONS (6)
  - MALAISE [None]
  - URINARY INCONTINENCE [None]
  - COLON CANCER [None]
  - LOSS OF CONSCIOUSNESS [None]
  - B-CELL LYMPHOMA [None]
  - PHLEBITIS [None]
